FAERS Safety Report 18858729 (Version 1)
Quarter: 2021Q1

REPORT INFORMATION
  Report Type: Spontaneous
  Country: US (occurrence: US)
  Receive Date: 20210206
  Receipt Date: 20210206
  Transmission Date: 20210420
  Serious: No
  Sender: FDA-Public Use
  Company Number: None

PATIENT
  Age: 8 Year
  Sex: Female
  Weight: 36 kg

DRUGS (6)
  1. CLONDINE 0.1 MG [Concomitant]
  2. SENNA 15 MG [Concomitant]
  3. GAS RELIEF [Concomitant]
     Active Substance: DIMETHICONE
  4. MONTELUKAST SODIUM CHEWABLE TABELTS [Suspect]
     Active Substance: MONTELUKAST SODIUM
     Indication: SLEEP APNOEA SYNDROME
     Dosage: ?          QUANTITY:1 TABLET(S);?
     Route: 048
     Dates: start: 20190524
  5. OMEPERAZOLE 40 MG [Concomitant]
  6. FLUXOTINE 15 MG [Concomitant]

REACTIONS (2)
  - Aggression [None]
  - Abnormal behaviour [None]

NARRATIVE: CASE EVENT DATE: 20190601
